FAERS Safety Report 10959777 (Version 1)
Quarter: 2015Q1

REPORT INFORMATION
  Report Type: Spontaneous
  Country: SE (occurrence: SE)
  Receive Date: 20150327
  Receipt Date: 20150327
  Transmission Date: 20150721
  Serious: Yes (Other)
  Sender: FDA-Public Use
  Company Number: SE-THROMBOGENICS INC.-SPO-2013-0537

PATIENT
  Age: 61 Year
  Sex: Female

DRUGS (1)
  1. JETREA [Suspect]
     Active Substance: OCRIPLASMIN
     Indication: VITREOUS ADHESIONS
     Dosage: 0.125 MG, ONE TIME DOSE
     Route: 031
     Dates: start: 20131114, end: 20131114

REACTIONS (10)
  - Macular detachment [Recovered/Resolved]
  - Colour blindness acquired [Unknown]
  - Visual impairment [Unknown]
  - Vision blurred [Unknown]
  - Nausea [Unknown]
  - Vitreous floaters [Unknown]
  - Retinal degeneration [Unknown]
  - Night blindness [Unknown]
  - Metamorphopsia [Unknown]
  - Headache [Unknown]

NARRATIVE: CASE EVENT DATE: 20131115
